FAERS Safety Report 24389759 (Version 1)
Quarter: 2024Q4

REPORT INFORMATION
  Report Type: Spontaneous
  Country: US (occurrence: US)
  Receive Date: 20241003
  Receipt Date: 20241003
  Transmission Date: 20250115
  Serious: No
  Sender: APOTEX
  Company Number: US-APOTEX-2024AP010703

PATIENT
  Age: 79 Year
  Sex: Female

DRUGS (5)
  1. CLOBETASOL [Suspect]
     Active Substance: CLOBETASOL
     Indication: Langerhans^ cell histiocytosis
     Dosage: UNK
     Route: 061
  2. IMIQUIMOD [Suspect]
     Active Substance: IMIQUIMOD
     Indication: Langerhans^ cell histiocytosis
     Dosage: UNK
     Route: 061
  3. FLUOCINOLONE [Suspect]
     Active Substance: FLUOCINOLONE
     Indication: Langerhans^ cell histiocytosis
     Dosage: UNK
     Route: 061
  4. DESOXIMETASONE [Suspect]
     Active Substance: DESOXIMETASONE
     Indication: Langerhans^ cell histiocytosis
     Dosage: UNK
     Route: 061
  5. NITROGEN MUSTARD [Suspect]
     Active Substance: MECHLORETHAMINE OXIDE HYDROCHLORIDE
     Indication: Langerhans^ cell histiocytosis
     Dosage: UNK
     Route: 061

REACTIONS (3)
  - Ulcer [Recovered/Resolved]
  - Irritability [Recovered/Resolved]
  - Haemorrhage [Recovered/Resolved]
